FAERS Safety Report 25890423 (Version 1)
Quarter: 2025Q4

REPORT INFORMATION
  Report Type: Report from Study
  Country: US (occurrence: US)
  Receive Date: 20251007
  Receipt Date: 20251007
  Transmission Date: 20260117
  Serious: Yes (Other)
  Sender: OTSUKA
  Company Number: US-MMM-Otsuka-NE6SZBO0

PATIENT
  Sex: Male

DRUGS (1)
  1. BREXPIPRAZOLE [Suspect]
     Active Substance: BREXPIPRAZOLE
     Indication: Product used for unknown indication
     Dosage: 1 MG
     Route: 065

REACTIONS (5)
  - Hallucination, visual [Unknown]
  - Paranoia [Unknown]
  - Negative thoughts [Unknown]
  - Disturbance in attention [Unknown]
  - Insomnia [Unknown]
